FAERS Safety Report 20762907 (Version 1)
Quarter: 2022Q2

REPORT INFORMATION
  Report Type: Spontaneous
  Country: US (occurrence: US)
  Receive Date: 20220428
  Receipt Date: 20220428
  Transmission Date: 20220721
  Serious: No
  Sender: FDA-Public Use
  Company Number: US-BAYER-2022A061326

PATIENT
  Age: 88 Year
  Sex: Male

DRUGS (1)
  1. MIRALAX [Suspect]
     Active Substance: POLYETHYLENE GLYCOL 3350
     Indication: Product used for unknown indication
     Dosage: 0.5 DF
     Route: 065

REACTIONS (3)
  - Incorrect dose administered [Unknown]
  - Faeces soft [Unknown]
  - Diarrhoea [Unknown]
